FAERS Safety Report 10434498 (Version 2)
Quarter: 2014Q3

REPORT INFORMATION
  Report Type: Report from Study
  Country: JP (occurrence: JP)
  Receive Date: 20140905
  Receipt Date: 20140925
  Transmission Date: 20150326
  Serious: Yes (Death)
  Sender: FDA-Public Use
  Company Number: JP-TEVA-507245USA

PATIENT
  Age: 23 Year
  Sex: Female
  Weight: 53.9 kg

DRUGS (7)
  1. TRIAMINE [Concomitant]
     Dates: start: 20140127, end: 20140219
  2. RIVOTRIL [Concomitant]
     Active Substance: CLONAZEPAM
     Indication: DISEASE COMPLICATION
     Route: 048
     Dates: start: 20140127, end: 20140219
  3. ZINC [Suspect]
     Active Substance: ZINC\ZINC CHLORIDE
     Indication: HEPATO-LENTICULAR DEGENERATION
     Dosage: 100 MILLIGRAM DAILY;
     Route: 065
     Dates: start: 20140127, end: 20140219
  4. METALITE [Concomitant]
     Indication: HEPATO-LENTICULAR DEGENERATION
     Route: 048
     Dates: start: 20140127, end: 20140219
  5. MAGMITT [Concomitant]
     Active Substance: MAGNESIUM OXIDE
     Indication: DISEASE COMPLICATION
     Route: 048
     Dates: start: 20140127, end: 20140219
  6. TENORMIN [Concomitant]
     Active Substance: ATENOLOL
     Indication: DISEASE COMPLICATION
     Route: 048
     Dates: start: 20140127, end: 20140219
  7. RISUMIC [Concomitant]
     Active Substance: AMEZINIUM METILSULFATE
     Route: 048
     Dates: start: 20140127, end: 20140219

REACTIONS (1)
  - Completed suicide [Fatal]
